FAERS Safety Report 7523331-5 (Version None)
Quarter: 2011Q2

REPORT INFORMATION
  Report Type: 
  Country: None (occurrence: None)
  Receive Date: 20110603
  Receipt Date: 20110406
  Transmission Date: 20111010
  Serious: Yes (Other)
  Sender: FDA-Public Use
  Company Number: A0921647A

PATIENT
  Age: 65 Year
  Sex: Male

DRUGS (5)
  1. LASIX [Concomitant]
  2. THEOPHYLLINE [Concomitant]
  3. ALBUTEROL [Concomitant]
  4. VENTOLIN [Suspect]
     Indication: ASTHMA
     Dosage: 2PUFF AS REQUIRED
     Route: 055
     Dates: start: 20101001
  5. POTASSIUM CHLORIDE [Concomitant]

REACTIONS (4)
  - PRODUCT QUALITY ISSUE [None]
  - ASTHMA [None]
  - DRUG INEFFECTIVE [None]
  - DYSPNOEA [None]
